FAERS Safety Report 9739017 (Version 2)
Quarter: 2013Q4

REPORT INFORMATION
  Report Type: Report from Study
  Country: FI (occurrence: FI)
  Receive Date: 20131209
  Receipt Date: 20131217
  Transmission Date: 20140711
  Serious: Yes (Life-Threatening, Hospitalization)
  Sender: FDA-Public Use
  Company Number: PHHO2013FI015893

PATIENT
  Sex: 0

DRUGS (5)
  1. AFINITOR [Suspect]
     Indication: BREAST CANCER METASTATIC
     Dosage: 10 MG, QD
     Route: 048
     Dates: start: 20131121, end: 20131203
  2. EXEMESTANE [Suspect]
     Indication: BREAST CANCER METASTATIC
     Dosage: 25 MG, QD
     Route: 048
     Dates: start: 20131121, end: 20131203
  3. SPIRONOLACTONE [Concomitant]
     Indication: CARDIOMYOPATHY
     Dosage: 12.5 MG, UNK
     Route: 048
     Dates: end: 20131205
  4. VALSARTAN [Concomitant]
     Indication: CARDIOMYOPATHY
     Dosage: 80 MG, UNK
     Route: 048
     Dates: end: 20131205
  5. BISOPROLOL [Concomitant]
     Indication: CARDIOMYOPATHY
     Dosage: 1.25 MG, UNK
     Route: 048
     Dates: end: 20131205

REACTIONS (7)
  - Subarachnoid haemorrhage [Not Recovered/Not Resolved]
  - Head injury [Not Recovered/Not Resolved]
  - Renal failure acute [Recovered/Resolved]
  - Thrombocytopenia [Recovering/Resolving]
  - Anaemia [Recovered/Resolved]
  - Hypotension [Recovered/Resolved]
  - Leukopenia [Recovered/Resolved]
